FAERS Safety Report 7654095-2 (Version None)
Quarter: 2011Q3

REPORT INFORMATION
  Report Type: 
  Country: None (occurrence: None)
  Receive Date: 20110803
  Receipt Date: 20110726
  Transmission Date: 20111222
  Serious: Yes (Hospitalization)
  Sender: FDA-Public Use
  Company Number: PHHY2011US69015

PATIENT
  Age: 59 Year
  Sex: Female
  Weight: 72 kg

DRUGS (9)
  1. ESTRADIOL [Concomitant]
     Indication: MENOPAUSE
     Dosage: 1 MG, UNK
     Dates: start: 19960605, end: 20091220
  2. INTERFERON BETA-1A                 /00596808/ [Concomitant]
     Dosage: 0.44 MG, UNK
     Route: 058
     Dates: start: 20050508, end: 20091221
  3. NALTREXONE HYDROCHLORIDE [Concomitant]
     Dosage: 4.5 MG, UNK
     Dates: start: 20080602
  4. LIOTHYRONINE SODIUM [Concomitant]
     Dosage: 7.5 UG, UNK
     Dates: start: 20090504
  5. POTASSIUM CHLORIDE [Concomitant]
     Dosage: UNK UKN, UNK
     Dates: start: 20091218, end: 20101004
  6. EXTAVIA [Suspect]
     Dosage: UNK UG/ML, UNK
     Route: 058
     Dates: start: 20050508, end: 20091220
  7. REBIF [Concomitant]
     Dosage: UNK UKN, UNK
     Dates: start: 20051101
  8. HYDROCHLOROTHIAZIDE [Concomitant]
     Indication: HYPERTENSION
     Dosage: UNK UKN, UNK
     Dates: start: 20090125
  9. PROVIGIL [Concomitant]
     Indication: SOMNOLENCE
     Dosage: 200 MG, UNK
     Dates: start: 20060302, end: 20100723

REACTIONS (2)
  - BREAST CANCER [None]
  - CATARACT [None]
